FAERS Safety Report 6050458-X (Version None)
Quarter: 2009Q1

REPORT INFORMATION
  Report Type: 
  Country: None (occurrence: None)
  Receive Date: 20090126
  Receipt Date: 20090114
  Transmission Date: 20090719
  Serious: Yes (Other)
  Sender: FDA-Public Use
  Company Number: PHHY2008JP27236

PATIENT
  Sex: Female

DRUGS (4)
  1. VOLTAREN [Suspect]
     Indication: SCIATICA
     Dosage: 50 MG
     Route: 054
     Dates: start: 20081021, end: 20081127
  2. ETIZOLAM [Interacting]
     Indication: INSOMNIA
     Dosage: UNK
     Route: 048
  3. NORVASC [Interacting]
     Indication: HYPERTENSION
     Dosage: 5 MG
     Route: 048
  4. PALGIN [Interacting]
     Indication: INSOMNIA
     Dosage: UNK
     Route: 048

REACTIONS (1)
  - FAECES DISCOLOURED [None]
